FAERS Safety Report 13785002 (Version 2)
Quarter: 2017Q3

REPORT INFORMATION
  Report Type: Report from Study
  Country: US (occurrence: US)
  Receive Date: 20170725
  Receipt Date: 20170728
  Transmission Date: 20171127
  Serious: Yes (Other)
  Sender: FDA-Public Use
  Company Number: US-AMGEN-USASL2017108942

PATIENT
  Age: 55 Year
  Sex: Female

DRUGS (1)
  1. REPATHA [Suspect]
     Active Substance: EVOLOCUMAB
     Indication: BLOOD CHOLESTEROL ABNORMAL
     Dosage: 140 MG, Q2WK
     Route: 065

REACTIONS (10)
  - Aphasia [Unknown]
  - Dysphonia [Unknown]
  - Weight increased [Not Recovered/Not Resolved]
  - Contusion [Unknown]
  - Injection site haemorrhage [Unknown]
  - Pain [Unknown]
  - Confusional state [Unknown]
  - Blood cholesterol decreased [Unknown]
  - Oropharyngeal pain [Unknown]
  - Injection site bruising [Unknown]

NARRATIVE: CASE EVENT DATE: 20170717
